FAERS Safety Report 25494197 (Version 1)
Quarter: 2025Q2

REPORT INFORMATION
  Report Type: Spontaneous
  Country: US (occurrence: US)
  Receive Date: 20250630
  Receipt Date: 20250630
  Transmission Date: 20250717
  Serious: No
  Sender: PFIZER
  Company Number: US-PFIZER INC-202500128499

PATIENT
  Age: 64 Year
  Sex: Female

DRUGS (6)
  1. XELJANZ XR [Suspect]
     Active Substance: TOFACITINIB CITRATE
  2. GABAPENTIN [Concomitant]
     Active Substance: GABAPENTIN
  3. DULOXETINE [Concomitant]
     Active Substance: DULOXETINE
  4. ALENDRONATE [Concomitant]
     Active Substance: ALENDRONATE SODIUM
  5. LEVOTHYROXINE [Concomitant]
     Active Substance: LEVOTHYROXINE
  6. ALBUTEROL [Concomitant]
     Active Substance: ALBUTEROL

REACTIONS (1)
  - Illness [Unknown]
